FAERS Safety Report 24206714 (Version 1)
Quarter: 2024Q3

REPORT INFORMATION
  Report Type: Spontaneous
  Country: IT (occurrence: IT)
  Receive Date: 20240813
  Receipt Date: 20240813
  Transmission Date: 20241016
  Serious: No
  Sender: JAZZ
  Company Number: None

PATIENT
  Age: 63 Year
  Sex: Male

DRUGS (1)
  1. VYXEOS [Suspect]
     Active Substance: CYTARABINE\DAUNORUBICIN
     Indication: Acute myeloid leukaemia
     Dosage: DAUNORUBICINA 44 MG/M? E CITARABINA 100 MG/M?  NEI GIORNI 1, 3 E 5
     Route: 042
     Dates: start: 20240402, end: 20240406

REACTIONS (3)
  - Aphthous ulcer [Not Recovered/Not Resolved]
  - Rash papular [Not Recovered/Not Resolved]
  - Body temperature increased [Not Recovered/Not Resolved]

NARRATIVE: CASE EVENT DATE: 20240404
